FAERS Safety Report 8793692 (Version 3)
Quarter: 2013Q2

REPORT INFORMATION
  Report Type: Spontaneous
  Country: CN (occurrence: CN)
  Receive Date: 20120917
  Receipt Date: 20130611
  Transmission Date: 20140414
  Serious: Yes (Hospitalization, Other)
  Sender: FDA-Public Use
  Company Number: CN-ASTRAZENECA-2012SE70471

PATIENT
  Age: 76 Year
  Sex: Male

DRUGS (23)
  1. BETALOC ZOK [Suspect]
     Indication: ATRIAL FIBRILLATION
     Route: 048
     Dates: start: 20120801, end: 20120823
  2. BETALOC ZOK [Suspect]
     Indication: HYPERTENSION
     Route: 048
     Dates: start: 20120801, end: 20120823
  3. BETALOC ZOK [Suspect]
     Indication: ARRHYTHMIA
     Route: 048
     Dates: start: 20120801, end: 20120823
  4. BETALOC ZOK [Suspect]
     Indication: CORONARY ARTERY DISEASE
     Route: 048
     Dates: start: 20120801, end: 20120823
  5. BETALOC ZOK [Suspect]
     Indication: ATRIAL FIBRILLATION
     Route: 048
     Dates: start: 20120824, end: 20120826
  6. BETALOC ZOK [Suspect]
     Indication: HYPERTENSION
     Route: 048
     Dates: start: 20120824, end: 20120826
  7. BETALOC ZOK [Suspect]
     Indication: ARRHYTHMIA
     Route: 048
     Dates: start: 20120824, end: 20120826
  8. BETALOC ZOK [Suspect]
     Indication: CORONARY ARTERY DISEASE
     Route: 048
     Dates: start: 20120824, end: 20120826
  9. BETALOC ZOK [Suspect]
     Indication: ATRIAL FIBRILLATION
     Route: 048
     Dates: start: 20120827, end: 20120919
  10. BETALOC ZOK [Suspect]
     Indication: HYPERTENSION
     Route: 048
     Dates: start: 20120827, end: 20120919
  11. BETALOC ZOK [Suspect]
     Indication: ARRHYTHMIA
     Route: 048
     Dates: start: 20120827, end: 20120919
  12. BETALOC ZOK [Suspect]
     Indication: CORONARY ARTERY DISEASE
     Route: 048
     Dates: start: 20120827, end: 20120919
  13. ROSUVASTATIN [Suspect]
     Route: 048
     Dates: start: 20120824, end: 20120919
  14. BAYASPIRIN [Concomitant]
     Route: 048
     Dates: start: 20120824
  15. ISOSORBIDE MONONITRATE [Concomitant]
     Route: 048
     Dates: start: 20120824
  16. METOPROLOL [Concomitant]
     Dates: start: 20120824
  17. METOPROLOL [Concomitant]
     Route: 048
     Dates: start: 20120827
  18. MONOPRIL [Concomitant]
     Route: 048
     Dates: start: 20120824
  19. LANSOPRAZOLE [Concomitant]
     Route: 048
     Dates: start: 20120824
  20. WENXIN [Concomitant]
     Route: 048
     Dates: start: 20120824
  21. MAREN [Concomitant]
     Route: 048
     Dates: start: 20120824
  22. MENNON [Concomitant]
  23. HEMP SEED [Concomitant]

REACTIONS (8)
  - Myocardial ischaemia [Unknown]
  - Angina unstable [Unknown]
  - Bundle branch block right [Unknown]
  - Ventricular tachycardia [Unknown]
  - Electrocardiogram RR interval prolonged [Unknown]
  - Atrial flutter [Unknown]
  - Ventricular extrasystoles [Unknown]
  - Arrhythmia supraventricular [Unknown]
